FAERS Safety Report 6381126-2 (Version None)
Quarter: 2009Q3

REPORT INFORMATION
  Report Type: 
  Country: None (occurrence: None)
  Receive Date: 20090929
  Receipt Date: 20090904
  Transmission Date: 20100115
  Serious: Yes (Hospitalization)
  Sender: FDA-Public Use
  Company Number: JP-BRISTOL-MYERS SQUIBB COMPANY-14721039

PATIENT
  Age: 56 Year
  Sex: Male
  Weight: 49 kg

DRUGS (3)
  1. ERBITUX [Suspect]
     Indication: RECTAL CANCER
     Dosage: RECENT INF ON 13JUL09.ALSO INF ON 06JUL09. 400MG/M2 FROM 11MAY09-11MAY09 250MG/M2 FROM 18MAY09-UNK
     Route: 042
     Dates: start: 20090511, end: 20090511
  2. IRINOTECAN HCL [Suspect]
     Indication: RECTAL CANCER
     Dosage: RECENT INF ON 06MAY09.
     Route: 042
     Dates: start: 20090511
  3. VENA [Concomitant]
     Indication: PREMEDICATION
     Dosage: FORM-TAB.
     Route: 048
     Dates: start: 20090511

REACTIONS (1)
  - ILEUS [None]
